FAERS Safety Report 7419909-X (Version None)
Quarter: 2011Q2

REPORT INFORMATION
  Report Type: 
  Country: None (occurrence: None)
  Receive Date: 20110413
  Receipt Date: 20110413
  Transmission Date: 20111010
  Serious: Yes (Hospitalization)
  Sender: FDA-Public Use
  Company Number: None

PATIENT
  Age: 84 Year
  Sex: Male
  Weight: 71.2 kg

DRUGS (9)
  1. ASPIRIN [Suspect]
     Indication: ATRIAL FIBRILLATION
     Dosage: 81 MG DAILY PO CHRONIC
     Route: 048
  2. ASPIRIN [Suspect]
     Indication: CORONARY ARTERY DISEASE
     Dosage: 81 MG DAILY PO CHRONIC
     Route: 048
  3. M.V.I. [Concomitant]
  4. VASOTEC [Concomitant]
  5. PRAVACHOL [Concomitant]
  6. COREG [Concomitant]
  7. TORSEMIDE [Concomitant]
  8. WARFARIN [Suspect]
     Indication: ATRIAL FIBRILLATION
     Dosage: 2 MG M W TH SS PO CHRONIC
     Route: 048
  9. ALLOPURINOL [Concomitant]

REACTIONS (3)
  - DIVERTICULUM INTESTINAL [None]
  - GASTROINTESTINAL ARTERIOVENOUS MALFORMATION [None]
  - LOWER GASTROINTESTINAL HAEMORRHAGE [None]
